FAERS Safety Report 22657852 (Version 1)
Quarter: 2023Q2

REPORT INFORMATION
  Report Type: Spontaneous
  Country: CN (occurrence: CN)
  Receive Date: 20230630
  Receipt Date: 20230630
  Transmission Date: 20230722
  Serious: Yes (Other)
  Sender: FDA-Public Use
  Company Number: CN-009507513-2306CHN013362

PATIENT
  Age: 58 Year
  Sex: Female

DRUGS (8)
  1. PEMBROLIZUMAB [Suspect]
     Active Substance: PEMBROLIZUMAB
     Indication: Metastatic gastric cancer
     Dosage: UNK, CYCLICAL; FOR 6 CYCLES
  2. PEMBROLIZUMAB [Suspect]
     Active Substance: PEMBROLIZUMAB
     Indication: Gastric cancer
     Dosage: UNK, CYCLICAL; MAINTENANCE THERAPY WAS ADMINISTERED FOR 6 CYCLES POSTOPERATIVELY
  3. LENVATINIB MESYLATE [Suspect]
     Active Substance: LENVATINIB MESYLATE
     Indication: Metastatic gastric cancer
     Dosage: UNK UNK, CYCLICAL; FOR 6 CYCLE
     Route: 048
  4. LENVATINIB MESYLATE [Suspect]
     Active Substance: LENVATINIB MESYLATE
     Indication: Gastric cancer
  5. OXALIPLATIN [Suspect]
     Active Substance: OXALIPLATIN
     Indication: Metastatic gastric cancer
     Dosage: UNK UNK, CYCLICAL; FOR 6 CYCLE
  6. OXALIPLATIN [Suspect]
     Active Substance: OXALIPLATIN
     Indication: Gastric cancer
  7. CAPECITABINE [Suspect]
     Active Substance: CAPECITABINE
     Indication: Metastatic gastric cancer
     Dosage: UNK UNK, CYCLICAL; FOR 6 CYCLE
  8. CAPECITABINE [Suspect]
     Active Substance: CAPECITABINE
     Indication: Gastric cancer

REACTIONS (2)
  - Febrile neutropenia [Unknown]
  - Off label use [Unknown]
